FAERS Safety Report 25186798 (Version 1)
Quarter: 2025Q2

REPORT INFORMATION
  Report Type: Spontaneous
  Country: JP (occurrence: JP)
  Receive Date: 20250411
  Receipt Date: 20250411
  Transmission Date: 20250717
  Serious: Yes (Other)
  Sender: AJANTA PHARMA
  Company Number: JP-AJANTA-2025AJA00047

PATIENT
  Age: 80 Year
  Sex: Male

DRUGS (1)
  1. DULOXETINE [Suspect]
     Active Substance: DULOXETINE
     Indication: Major depression

REACTIONS (1)
  - Febrile neutropenia [Recovered/Resolved]
